FAERS Safety Report 9511433 (Version 1)
Quarter: 2013Q1

REPORT INFORMATION
  Report Type: Spontaneous
  Country: US (occurrence: None)
  Receive Date: 20130305
  Receipt Date: 20130305
  Transmission Date: 20140127
  Serious: Yes (Hospitalization)
  Sender: FDA-Public Use
  Company Number: 163-21880-12103337

PATIENT
  Age: 78 Year
  Sex: Female

DRUGS (4)
  1. REVLIMID [Suspect]
     Indication: MYELODYSPLASTIC SYNDROME
     Dosage: 10 MG, 1 IN 1 D, PO
     Route: 048
     Dates: start: 20121005
  2. CIPROFLOXACIN HCL (CIPROFLOXACIN HYDROCHLORIDE) [Concomitant]
  3. MEGESTROL ACETATE (MEGESTROL ACETATE) [Concomitant]
  4. AMOXICILLIN (AMOXICILLIN) [Concomitant]

REACTIONS (2)
  - Anaemia [None]
  - Thrombocytopenia [None]
